FAERS Safety Report 10273014 (Version 1)
Quarter: 2014Q1

REPORT INFORMATION
  Report Type: Spontaneous
  Country: US (occurrence: None)
  Receive Date: 20140306
  Receipt Date: 20140306
  Transmission Date: 20141002
  Serious: Yes (Other)
  Sender: FDA-Public Use
  Company Number: 163-21880-13064183

PATIENT
  Age: 87 Year
  Sex: Male
  Weight: 83.9 kg

DRUGS (12)
  1. REVLIMID (LENALIDOMIDE) (10 MILLIGRAM, CAPSULES) [Suspect]
     Indication: PLASMA CELL MYELOMA
     Route: 048
     Dates: start: 201101
  2. CENTRUM SILVER (CENTRUM SILVER) (TABLETS) [Concomitant]
  3. FUROSEMIDE (FUROSEMIDE) (TABLETS) [Concomitant]
  4. FINASTERIDE (FINASTERIDE) (TABLETS) [Concomitant]
  5. PANTOPRAZOLE SODIUM (PANTOPRAZOLE SODIUM) (TABLETS) [Concomitant]
  6. DEXAMETHASONE (DEXAMETHASONE) (TABLETS) [Concomitant]
  7. VENTOLIN HFA (SALBUTAMOL SULFATE) (INHALANT) [Concomitant]
  8. LATANOPROST (LATANOPROST) (DROPS) [Concomitant]
  9. BENZONATATE (BENZONATATE) (CAPSULES) [Concomitant]
  10. ENOXAPARIN (ENOXAPARIN) (SYRUP) [Concomitant]
  11. SF 5000 PLUS (SODIUM FLUORIDE) (CREAM) [Concomitant]
  12. LEVOFLOXACIN (LEVOFLOXACIN) (TABLETS) [Concomitant]

REACTIONS (1)
  - Thrombosis [None]
